FAERS Safety Report 9068219 (Version 1)
Quarter: 2013Q1

REPORT INFORMATION
  Report Type: Spontaneous
  Country: BR (occurrence: BR)
  Receive Date: 20130206
  Receipt Date: 20130206
  Transmission Date: 20140127
  Serious: Yes (Other)
  Sender: FDA-Public Use
  Company Number: BR-PFIZER INC-2013041731

PATIENT
  Age: 74 Year
  Sex: Male
  Weight: 89 kg

DRUGS (8)
  1. XALATAN [Suspect]
     Indication: GLAUCOMA
     Dosage: 1 DROP EACH EYE OF 1.5UG (TOTAL OF 3 UG), 2X/DAY
     Route: 047
     Dates: start: 20100130
  2. CLOPIDOGREL BISULFATE [Concomitant]
     Dosage: 1 CAPSULE (UNSPECIFIED DOSE) A DAY
  3. CITALOR [Concomitant]
     Dosage: 1 CAPSULE (10 MG) A DAY
     Dates: start: 19930130
  4. ISORDIL [Concomitant]
     Dosage: 1 CAPSULE (UNSPECIFIED DOSE) A DAY, BUT HE DID NOT USE IT EVERYDAY
  5. LOSARTAN [Concomitant]
     Dosage: 1 CAPSULE (UNSPECIFIED DOSE) A DAY
  6. MONOCORDIL [Concomitant]
     Dosage: UNK
  7. SELOZOK [Concomitant]
     Dosage: UNK
  8. SIMVASTATIN [Concomitant]
     Dosage: 1 CAPSULE (UNSPECIFIED DOSE) A DAY

REACTIONS (2)
  - Tendonitis [Unknown]
  - Overdose [Unknown]
